FAERS Safety Report 6024710-8 (Version None)
Quarter: 2008Q4

REPORT INFORMATION
  Report Type: 
  Country: None (occurrence: None)
  Receive Date: 20081231
  Receipt Date: 20081222
  Transmission Date: 20090506
  Serious: Yes (Other)
  Sender: FDA-Public Use
  Company Number: US-NOVOPROD-282596

PATIENT
  Age: 72 Year
  Sex: Female

DRUGS (7)
  1. PRANDIN [Suspect]
     Indication: TYPE 2 DIABETES MELLITUS
     Dosage: .5 MG, TID
     Route: 048
     Dates: start: 20081003
  2. TOPROL-XL [Concomitant]
     Indication: HYPERTENSION
     Route: 048
  3. MONOPRIL-HCT [Concomitant]
     Indication: HYPERTENSION
     Route: 048
  4. PAXIL CR [Concomitant]
     Indication: DEPRESSION
     Dosage: 25 MG, QD
     Route: 048
  5. XANAX [Concomitant]
     Indication: ANXIETY
     Dosage: .25 MG, UNK
     Route: 048
  6. FLUOROURACIL [Concomitant]
     Indication: COLON CANCER
  7. OXIPLAT [Concomitant]
     Indication: COLON CANCER

REACTIONS (2)
  - BREAST DISCOMFORT [None]
  - PLATELET COUNT DECREASED [None]
